FAERS Safety Report 5589704-5 (Version None)
Quarter: 2008Q1

REPORT INFORMATION
  Report Type: 
  Country: None (occurrence: None)
  Receive Date: 20080114
  Receipt Date: 20080111
  Transmission Date: 20080703
  Serious: Yes (Hospitalization)
  Sender: FDA-Public Use
  Company Number: B0499364A

PATIENT
  Sex: Female

DRUGS (1)
  1. VALTREX [Suspect]
     Indication: HERPES ZOSTER
     Dosage: 1000MG THREE TIMES PER DAY
     Route: 048
     Dates: start: 20071115, end: 20071118

REACTIONS (5)
  - ALTERED STATE OF CONSCIOUSNESS [None]
  - DYSARTHRIA [None]
  - HALLUCINATION [None]
  - ILLUSION [None]
  - NERVOUS SYSTEM DISORDER [None]
